FAERS Safety Report 20245142 (Version 4)
Quarter: 2022Q2

REPORT INFORMATION
  Report Type: Report from Study
  Country: US (occurrence: US)
  Receive Date: 20211229
  Receipt Date: 20220610
  Transmission Date: 20220721
  Serious: Yes (Hospitalization, Other)
  Sender: FDA-Public Use
  Company Number: US-INSMED, INC.-2021-07925-US

PATIENT
  Sex: Female

DRUGS (1)
  1. ARIKAYCE [Suspect]
     Active Substance: AMIKACIN
     Indication: Product used for unknown indication
     Dosage: 590 MILLIGRAM, QD
     Route: 055
     Dates: start: 20200429

REACTIONS (12)
  - Hospitalisation [Unknown]
  - Surgery [Unknown]
  - Illness [Unknown]
  - Illness [Unknown]
  - Malaise [Unknown]
  - Asthenia [Unknown]
  - Product dose omission issue [Unknown]
  - Product packaging difficult to open [Unknown]
  - Device leakage [Unknown]
  - Product design issue [Unknown]
  - Accidental underdose [Unknown]
  - Therapy interrupted [Unknown]
